FAERS Safety Report 21839750 (Version 1)
Quarter: 2023Q1

REPORT INFORMATION
  Report Type: Spontaneous
  Country: US (occurrence: None)
  Receive Date: 20230109
  Receipt Date: 20230109
  Transmission Date: 20230417
  Serious: No
  Sender: FDA-Public Use
  Company Number: 2023A002865

PATIENT
  Sex: Female

DRUGS (3)
  1. TEZSPIRE [Suspect]
     Active Substance: TEZEPELUMAB-EKKO
     Indication: Asthma
     Route: 058
  2. LEVETIRACETAM [Concomitant]
     Active Substance: LEVETIRACETAM
  3. TOPIRAMATE [Concomitant]
     Active Substance: TOPIRAMATE

REACTIONS (3)
  - Weight decreased [Unknown]
  - Fatigue [Unknown]
  - Asthenia [Unknown]
